FAERS Safety Report 9207903 (Version 2)
Quarter: 2013Q2

REPORT INFORMATION
  Report Type: Spontaneous
  Country: DE (occurrence: DE)
  Receive Date: 20130403
  Receipt Date: 20130528
  Transmission Date: 20140414
  Serious: Yes (Other)
  Sender: FDA-Public Use
  Company Number: DE-GLAXOSMITHKLINE-D0079311A

PATIENT
  Sex: Female

DRUGS (1)
  1. BENLYSTA [Suspect]
     Route: 042

REACTIONS (2)
  - Myelitis [Unknown]
  - Spinal cord paralysis [Unknown]
